FAERS Safety Report 6672868-X (Version None)
Quarter: 2010Q2

REPORT INFORMATION
  Report Type: 
  Country: None (occurrence: None)
  Receive Date: 20100408
  Receipt Date: 20100329
  Transmission Date: 20101027
  Serious: Yes (Other)
  Sender: FDA-Public Use
  Company Number: PHHY2010CO19323

PATIENT
  Sex: Male

DRUGS (4)
  1. CLOZAPINE [Suspect]
     Indication: BIPOLAR DISORDER
     Dosage: 100 MGS
     Route: 048
  2. CLOZAPINE [Suspect]
     Dosage: 50MG PER DAY
     Route: 048
     Dates: start: 20100325
  3. VALPROIC ACID [Concomitant]
     Dosage: 1000 MGS PER DAY
  4. NAPROXEN [Concomitant]
     Indication: PAIN
     Dosage: 250 MGS

REACTIONS (8)
  - AGGRESSION [None]
  - DEPRESSION [None]
  - DIZZINESS [None]
  - DYSKINESIA [None]
  - FEELING ABNORMAL [None]
  - HYPERHIDROSIS [None]
  - IRRITABILITY [None]
  - SOMNOLENCE [None]
